FAERS Safety Report 4377555-9 (Version None)
Quarter: 2004Q2

REPORT INFORMATION
  Report Type: 
  Country: None (occurrence: None)
  Receive Date: 20040602
  Receipt Date: 20031001
  Transmission Date: 20050107
  Serious: Yes (Life-Threatening, Other)
  Sender: FDA-Public Use
  Company Number: US-JNJFOC-20031003378

PATIENT
  Sex: Female
  Weight: 74.3899 kg

DRUGS (10)
  1. PROPULSID [Suspect]
     Indication: GASTRITIS
     Dates: start: 19990401
  2. PROPULSID [Suspect]
     Indication: HIATUS HERNIA
     Dates: start: 19990401
  3. PROPULSID [Suspect]
     Indication: IMPAIRED GASTRIC EMPTYING
     Dates: start: 19990401
  4. PROPULSID [Suspect]
     Indication: GASTROOESOPHAGEAL REFLUX DISEASE
     Dosage: 20 MG, 3 IN 1 DAY
     Dates: start: 19990604
  5. PROPULSID [Suspect]
     Indication: IMPAIRED GASTRIC EMPTYING
     Dosage: 20 MG, 3 IN 1 DAY
     Dates: start: 19990604
  6. PRILOSEC [Concomitant]
  7. SURFAK (DOCUSATE CALCIUM) [Concomitant]
  8. CITRUCEL (METHYLCELLULOSE) [Concomitant]
  9. GLYBURIDE [Concomitant]
  10. ESTRADERM [Concomitant]

REACTIONS (5)
  - CARDIAC DISORDER [None]
  - ELECTROCARDIOGRAM QT PROLONGED [None]
  - TORSADE DE POINTES [None]
  - VENTRICULAR FIBRILLATION [None]
  - VENTRICULAR TACHYCARDIA [None]
